FAERS Safety Report 4848966-X (Version None)
Quarter: 2005Q4

REPORT INFORMATION
  Report Type: 
  Country: None (occurrence: None)
  Receive Date: 20051208
  Receipt Date: 20051005
  Transmission Date: 20060501
  Serious: Yes (Hospitalization, Disabling)
  Sender: FDA-Public Use
  Company Number: US-MERCK-0510USA04329

PATIENT
  Age: 41 Year
  Sex: Male
  Weight: 84 kg

DRUGS (3)
  1. VIOXX [Suspect]
     Indication: MUSCLE SPASMS
     Route: 048
     Dates: start: 20000101, end: 20030301
  2. VIOXX [Suspect]
     Indication: SCIATICA
     Route: 048
     Dates: start: 20000101, end: 20030301
  3. TYLENOL [Concomitant]
     Route: 065

REACTIONS (7)
  - CHEST PAIN [None]
  - FLATULENCE [None]
  - MUSCLE SPASMS [None]
  - MYOCARDIAL INFARCTION [None]
  - NECK INJURY [None]
  - RESPIRATORY TRACT INFECTION [None]
  - SCIATICA [None]
